FAERS Safety Report 21016108 (Version 1)
Quarter: 2022Q2

REPORT INFORMATION
  Report Type: Spontaneous
  Country: US (occurrence: None)
  Receive Date: 20220627
  Receipt Date: 20220627
  Transmission Date: 20220721
  Serious: No
  Sender: FDA-Public Use
  Company Number: None

PATIENT
  Sex: Female

DRUGS (1)
  1. OCTAGAM IMMUNE GLOBULIN (HUMAN) [Suspect]
     Active Substance: HUMAN IMMUNOGLOBULIN G
     Indication: Demyelinating polyneuropathy
     Dosage: INFUSE 60MG IV DAILY FOR 2 DAYS EVERY 4 WEEKS
     Route: 042
     Dates: start: 202202

REACTIONS (6)
  - Dyspnoea [None]
  - Asthenia [None]
  - Fatigue [None]
  - Balance disorder [None]
  - Headache [None]
  - Infusion related reaction [None]
